FAERS Safety Report 9713904 (Version 2)
Quarter: 2013Q4

REPORT INFORMATION
  Report Type: Report from Study
  Country: CZ (occurrence: CZ)
  Receive Date: 20131126
  Receipt Date: 20131126
  Transmission Date: 20140711
  Serious: Yes (Hospitalization, Other)
  Sender: FDA-Public Use
  Company Number: CZ-ABBVIE-13P-217-1149174-00

PATIENT
  Age: 46 Year
  Sex: Male
  Weight: 110 kg

DRUGS (2)
  1. HUMIRA [Suspect]
     Indication: ANKYLOSING SPONDYLITIS
     Route: 058
     Dates: start: 20110902
  2. LOSARTAN [Concomitant]
     Indication: PRODUCT USED FOR UNKNOWN INDICATION
     Dates: start: 2008

REACTIONS (9)
  - Cardiac hypertrophy [Unknown]
  - Myocardial infarction [Unknown]
  - Chest pain [Recovered/Resolved]
  - Chest pain [Recovered/Resolved]
  - Dyspnoea [Unknown]
  - Hyperhidrosis [Unknown]
  - Troponin increased [Unknown]
  - Diastolic dysfunction [Unknown]
  - Cardiomegaly [Unknown]
